FAERS Safety Report 6674546-X (Version None)
Quarter: 2010Q2

REPORT INFORMATION
  Report Type: 
  Country: None (occurrence: None)
  Receive Date: 20100409
  Receipt Date: 20100331
  Transmission Date: 20101027
  Serious: Yes (Hospitalization)
  Sender: FDA-Public Use
  Company Number: CA-JNJFOC-20100401083

PATIENT
  Sex: Male
  Weight: 71 kg

DRUGS (12)
  1. REMICADE [Suspect]
     Indication: CROHN'S DISEASE
     Route: 042
  2. REMICADE [Suspect]
     Route: 042
  3. FOSAMAX [Concomitant]
  4. PENTASA [Concomitant]
  5. PANTOPRAZOLE [Concomitant]
  6. CALCIUM AND VITAMIN D [Concomitant]
  7. PREDNISONE TAB [Concomitant]
  8. MINOCYCLINE HCL [Concomitant]
  9. MOTILIUM [Concomitant]
  10. NEXIUM [Concomitant]
  11. ZOPLICONE [Concomitant]
  12. FOLIC ACID [Concomitant]

REACTIONS (1)
  - SALMONELLOSIS [None]
